FAERS Safety Report 5581682-8 (Version None)
Quarter: 2008Q1

REPORT INFORMATION
  Report Type: 
  Country: None (occurrence: None)
  Receive Date: 20080104
  Receipt Date: 20071221
  Transmission Date: 20080703
  Serious: Yes (Other)
  Sender: FDA-Public Use
  Company Number: SI-ELI_LILLY_AND_COMPANY-SI200711004121

PATIENT
  Age: 60 Year
  Sex: Male

DRUGS (2)
  1. CYMBALTA [Suspect]
     Indication: MAJOR DEPRESSION
     Dosage: UNK, UNKNOWN
  2. TRAMADOL HCL [Concomitant]
     Dosage: UNK, UNKNOWN

REACTIONS (3)
  - BRAIN NEOPLASM BENIGN [None]
  - LOSS OF CONSCIOUSNESS [None]
  - VOMITING [None]
